FAERS Safety Report 11720557 (Version 1)
Quarter: 2015Q4

REPORT INFORMATION
  Report Type: Spontaneous
  Country: US (occurrence: US)
  Receive Date: 20151110
  Receipt Date: 20151110
  Transmission Date: 20160304
  Serious: Yes (Other)
  Sender: FDA-Public Use
  Company Number: US-APOPHARMA USA, INC.-2013AP006844

PATIENT
  Age: 29 Year
  Sex: Female
  Weight: 46 kg

DRUGS (3)
  1. DEFERASIROX [Concomitant]
     Active Substance: DEFERASIROX
     Route: 048
  2. FERRIPROX [Suspect]
     Active Substance: DEFERIPRONE
     Route: 048
     Dates: start: 20120117
  3. FERRIPROX [Suspect]
     Active Substance: DEFERIPRONE
     Indication: IRON OVERLOAD
     Route: 048
     Dates: start: 20120117

REACTIONS (2)
  - Vomiting [Recovered/Resolved]
  - Nausea [Recovered/Resolved]

NARRATIVE: CASE EVENT DATE: 20120821
